FAERS Safety Report 9625438 (Version 1)
Quarter: 2013Q4

REPORT INFORMATION
  Report Type: Spontaneous
  Country: KR (occurrence: KR)
  Receive Date: 20131016
  Receipt Date: 20131016
  Transmission Date: 20140711
  Serious: Yes (Hospitalization, Other)
  Sender: FDA-Public Use
  Company Number: KR-JNJFOC-20131006085

PATIENT
  Age: 17 Year
  Sex: Female
  Weight: 42 kg

DRUGS (3)
  1. INFLIXIMAB, RECOMBINANT [Suspect]
     Indication: CROHN^S DISEASE
     Route: 042
  2. AZATHIOPRINE [Concomitant]
     Route: 065
  3. AZATHIOPRINE [Concomitant]
     Route: 065

REACTIONS (2)
  - Ileal perforation [Recovered/Resolved]
  - Peritonitis [Recovered/Resolved]
